FAERS Safety Report 10953877 (Version 1)
Quarter: 2015Q1

REPORT INFORMATION
  Report Type: Spontaneous
  Country: US (occurrence: None)
  Receive Date: 20150226
  Receipt Date: 20150226
  Transmission Date: 20150721
  Serious: Yes (Other)
  Sender: FDA-Public Use
  Company Number: TPA2010A05604

PATIENT
  Age: 76 Year
  Sex: Male
  Weight: 85.73 kg

DRUGS (3)
  1. NSAID (NSAID^S) [Concomitant]
  2. ACE INHIBITOR (ACE INHIBITOR NOS) [Concomitant]
  3. ULORIC [Suspect]
     Active Substance: FEBUXOSTAT
     Indication: GOUT
     Dosage: 1 IN 1 DAY
     Route: 048
     Dates: start: 20100216, end: 20100716

REACTIONS (1)
  - Renal failure [None]

NARRATIVE: CASE EVENT DATE: 20100802
